FAERS Safety Report 5782600-X (Version None)
Quarter: 2008Q2

REPORT INFORMATION
  Report Type: 
  Country: None (occurrence: None)
  Receive Date: 20080624
  Receipt Date: 20080611
  Transmission Date: 20081010
  Serious: Yes (Other)
  Sender: FDA-Public Use
  Company Number: US-PFIZER INC-2008050284

PATIENT
  Sex: Male
  Weight: 99.8 kg

DRUGS (1)
  1. LYRICA [Suspect]
     Indication: NEUROPATHY PERIPHERAL
     Route: 048

REACTIONS (2)
  - FAT TISSUE INCREASED [None]
  - WAIST CIRCUMFERENCE INCREASED [None]
